FAERS Safety Report 5560076-5 (Version None)
Quarter: 2007Q4

REPORT INFORMATION
  Report Type: 
  Country: None (occurrence: None)
  Receive Date: 20071214
  Receipt Date: 20071108
  Transmission Date: 20080405
  Serious: No
  Sender: FDA-Public Use
  Company Number: US-ABBOTT-07P-163-0422187-00

PATIENT
  Sex: Female

DRUGS (2)
  1. ADALIMUMAB [Suspect]
     Indication: CROHN'S DISEASE
     Route: 058
     Dates: start: 20071022, end: 20071022
  2. ADALIMUMAB [Suspect]

REACTIONS (1)
  - INJECTION SITE BRUISING [None]
